FAERS Safety Report 15028600 (Version 1)
Quarter: 2018Q2

REPORT INFORMATION
  Report Type: Spontaneous
  Country: US (occurrence: US)
  Receive Date: 20180619
  Receipt Date: 20180619
  Transmission Date: 20180711
  Serious: No
  Sender: FDA-Public Use
  Company Number: US-ASTRAZENECA-2018SE65956

PATIENT
  Sex: Male
  Weight: 99.8 kg

DRUGS (3)
  1. SYMBICORT [Suspect]
     Active Substance: BUDESONIDE\FORMOTEROL FUMARATE DIHYDRATE
     Indication: PROPHYLAXIS
     Dosage: 160/4.5 MCG 120 INHALATIONS, UNKNOWN UNKNOWN
     Route: 055
     Dates: start: 201804
  2. PROAIR INHALER [Concomitant]
     Active Substance: ALBUTEROL SULFATE
     Indication: ASTHMA
     Dosage: AS REQUIRED
     Route: 055
  3. ALBUTEROL. [Concomitant]
     Active Substance: ALBUTEROL
     Route: 055

REACTIONS (10)
  - Wheezing [Unknown]
  - Bronchitis [Unknown]
  - Vocal cord paralysis [Unknown]
  - Throat irritation [Unknown]
  - Intentional product misuse [Unknown]
  - Dyspnoea [Unknown]
  - Cough [Unknown]
  - Drug dose omission [Unknown]
  - Dysphonia [Unknown]
  - Drug ineffective [Unknown]
